FAERS Safety Report 10284976 (Version 8)
Quarter: 2018Q1

REPORT INFORMATION
  Report Type: Report from Study
  Country: US (occurrence: US)
  Receive Date: 20140708
  Receipt Date: 20180309
  Transmission Date: 20180508
  Serious: Yes (Other)
  Sender: FDA-Public Use
  Company Number: US-SANOFI-AVENTIS-2013SA081009

PATIENT
  Age: 63 Year
  Sex: Male

DRUGS (2)
  1. AUBAGIO [Suspect]
     Active Substance: TERIFLUNOMIDE
     Indication: MULTIPLE SCLEROSIS
     Route: 048
     Dates: start: 20130328
  2. KLONOPIN [Concomitant]
     Active Substance: CLONAZEPAM

REACTIONS (19)
  - Constipation [Unknown]
  - Contusion [Unknown]
  - Balance disorder [Unknown]
  - Therapeutic response unexpected [Unknown]
  - Oesophageal carcinoma [Unknown]
  - Lyme disease [Unknown]
  - Anxiety [Unknown]
  - Arthralgia [Unknown]
  - Peripheral swelling [Unknown]
  - Presyncope [Unknown]
  - Insomnia [Unknown]
  - Fatigue [Unknown]
  - Gait disturbance [Unknown]
  - Asthenia [Unknown]
  - Functional gastrointestinal disorder [Unknown]
  - Cognitive disorder [Unknown]
  - Fall [Unknown]
  - Swelling [Unknown]
  - Condition aggravated [Unknown]

NARRATIVE: CASE EVENT DATE: 2013
